FAERS Safety Report 6967468-8 (Version None)
Quarter: 2010Q3

REPORT INFORMATION
  Report Type: 
  Country: None (occurrence: None)
  Receive Date: 20100907
  Receipt Date: 20100903
  Transmission Date: 20110219
  Serious: Yes (Life-Threatening)
  Sender: FDA-Public Use
  Company Number: DE-ASTRAZENECA-2010SE30941

PATIENT
  Age: 9928 Day
  Sex: Male
  Weight: 135 kg

DRUGS (2)
  1. SEROQUEL XR [Suspect]
     Indication: SCHIZOPHRENIA, PARANOID TYPE
     Dosage: UP TO 1000 MG
     Route: 048
     Dates: start: 20100523, end: 20100623
  2. SEROQUEL XR [Suspect]
     Indication: SCHIZOPHRENIA
     Dosage: UP TO 1000 MG
     Route: 048
     Dates: start: 20100523, end: 20100623

REACTIONS (2)
  - DEEP VEIN THROMBOSIS [None]
  - PULMONARY EMBOLISM [None]
